FAERS Safety Report 10056855 (Version 1)
Quarter: 2014Q2

REPORT INFORMATION
  Report Type: Spontaneous
  Country: US (occurrence: US)
  Receive Date: 20140403
  Receipt Date: 20140403
  Transmission Date: 20141212
  Serious: No
  Sender: FDA-Public Use
  Company Number: US-009507513-1404USA001063

PATIENT
  Age: 65 Year
  Sex: Male

DRUGS (1)
  1. NASONEX [Suspect]
     Dosage: UNK, QD, 1 SPRAY IN EACH NOSTRIL/ONCE DAILY.
     Route: 045

REACTIONS (5)
  - Rhinorrhoea [Unknown]
  - Nasal discomfort [Unknown]
  - Nasal disorder [Unknown]
  - Drug dose omission [Unknown]
  - Product quality issue [Unknown]
